FAERS Safety Report 4529961-7 (Version None)
Quarter: 2004Q4

REPORT INFORMATION
  Report Type: 
  Country: None (occurrence: None)
  Receive Date: 20041215
  Receipt Date: 20041215
  Transmission Date: 20050328
  Serious: No
  Sender: FDA-Public Use
  Company Number: None

PATIENT
  Age: 37 Year

DRUGS (1)
  1. EPHEDRA [Suspect]

REACTIONS (5)
  - ARRHYTHMIA [None]
  - CHEST DISCOMFORT [None]
  - HYPERTENSION [None]
  - MUSCLE SPASMS [None]
  - PALPITATIONS [None]
